FAERS Safety Report 4378352-0 (Version None)
Quarter: 2004Q2

REPORT INFORMATION
  Report Type: 
  Country: None (occurrence: None)
  Receive Date: 20040609
  Receipt Date: 20040602
  Transmission Date: 20050107
  Serious: Yes (Death, Hospitalization)
  Sender: FDA-Public Use
  Company Number: US-SHR-03-001054

PATIENT
  Age: 49 Year
  Sex: Female

DRUGS (5)
  1. BETASERON [Suspect]
     Indication: MULTIPLE SCLEROSIS
     Dosage: 8 MIU, EVERY 2D; SUBCUTANEOUS
     Route: 058
     Dates: start: 20020601
  2. NEURONTIN [Concomitant]
  3. DETROL LA [Concomitant]
  4. (TOLTERODINE) [Concomitant]
  5. TRAZODONE HCL [Concomitant]

REACTIONS (1)
  - MYOCARDIAL INFARCTION [None]
